FAERS Safety Report 10111063 (Version 2)
Quarter: 2014Q4

REPORT INFORMATION
  Report Type: Spontaneous
  Country: US (occurrence: None)
  Receive Date: 20140421
  Receipt Date: 20141020
  Transmission Date: 20150528
  Serious: No
  Sender: FDA-Public Use
  Company Number: AEGR000311

PATIENT
  Age: 62 Year
  Sex: Female
  Weight: 77.1 kg

DRUGS (10)
  1. VIT D (ERGOCALCIFEROL) [Concomitant]
     Active Substance: ERGOCALCIFEROL
  2. SYNTHROID [Concomitant]
     Active Substance: LEVOTHYROXINE SODIUM
  3. VASCEPA [Concomitant]
     Active Substance: ETHYL ICOSAPENTATE
  4. MOTRIN [Concomitant]
     Active Substance: IBUPROFEN
  5. LOVAZA (OMEGA-3-ACID ETHYL ESTER) [Concomitant]
  6. JUXTAPID [Suspect]
     Active Substance: LOMITAPIDE MESYLATE
     Indication: TYPE IIA HYPERLIPIDAEMIA
     Route: 048
     Dates: start: 20131029
  7. OMEPRAZOLE (OMEPRAZOLE) [Concomitant]
     Active Substance: OMEPRAZOLE
  8. VITAMINS [Concomitant]
     Active Substance: VITAMINS
  9. VIT E (TOCOPHEROL) [Concomitant]
  10. OMEGA 3 (FISH OIL) [Concomitant]
     Active Substance: OMEGA-3 FATTY ACIDS

REACTIONS (1)
  - Diarrhoea [None]

NARRATIVE: CASE EVENT DATE: 201311
